FAERS Safety Report 6371962-0 (Version None)
Quarter: 2009Q3

REPORT INFORMATION
  Report Type: 
  Country: None (occurrence: None)
  Receive Date: 20090923
  Receipt Date: 20090916
  Transmission Date: 20100115
  Serious: Yes (Death)
  Sender: FDA-Public Use
  Company Number: US-BAXTER-2008BH011638

PATIENT
  Age: 84 Year
  Sex: Female

DRUGS (3)
  1. HEPARIN SODIUM INJECTION [Suspect]
     Indication: DRUG USE FOR UNKNOWN INDICATION
     Dosage: DOSE UNIT:UNKNOWN
     Route: 065
     Dates: start: 20070201, end: 20070101
  2. HEPARIN SODIUM INJECTION [Suspect]
     Dosage: DOSE UNIT:UNKNOWN
     Route: 065
     Dates: start: 20070206, end: 20070206
  3. CAPOTEN [Concomitant]
     Indication: DRUG USE FOR UNKNOWN INDICATION
     Route: 065

REACTIONS (2)
  - ADVERSE EVENT [None]
  - CARDIAC ARREST [None]
